FAERS Safety Report 9258069 (Version 3)
Quarter: 2014Q1

REPORT INFORMATION
  Report Type: Report from Study
  Country: CA (occurrence: CA)
  Receive Date: 20130426
  Receipt Date: 20140113
  Transmission Date: 20141002
  Serious: Yes (Other)
  Sender: FDA-Public Use
  Company Number: PHHY2012CA123507

PATIENT
  Age: 21 Year
  Sex: Male

DRUGS (2)
  1. EXJADE [Suspect]
     Indication: IRON OVERLOAD
     Dosage: 1000 MG, QD
     Route: 048
     Dates: start: 20121001, end: 201311
  2. FOLIC ACID [Concomitant]
     Dosage: UNK UKN, UNK

REACTIONS (7)
  - Infectious mononucleosis [Unknown]
  - Feeling abnormal [Unknown]
  - Malaise [Unknown]
  - Blood iron abnormal [Unknown]
  - Abdominal discomfort [Unknown]
  - Headache [Unknown]
  - Abdominal pain [Recovered/Resolved]
